FAERS Safety Report 10408315 (Version 1)
Quarter: 2014Q3

REPORT INFORMATION
  Report Type: Spontaneous
  Country: US (occurrence: US)
  Receive Date: 20140826
  Receipt Date: 20140826
  Transmission Date: 20150326
  Serious: No
  Sender: FDA-Public Use
  Company Number: US-BIOGENIDEC-2014BI085020

PATIENT
  Age: 33 Year
  Sex: Male

DRUGS (3)
  1. AVONEX [Concomitant]
     Active Substance: INTERFERON BETA-1A
     Indication: MULTIPLE SCLEROSIS
     Route: 030
  2. AVONEX [Concomitant]
     Active Substance: INTERFERON BETA-1A
     Indication: MULTIPLE SCLEROSIS
     Route: 030
     Dates: start: 20081223
  3. TYSABRI [Suspect]
     Active Substance: NATALIZUMAB
     Indication: MULTIPLE SCLEROSIS
     Route: 042
     Dates: start: 20140806

REACTIONS (9)
  - Vision blurred [Not Recovered/Not Resolved]
  - Adverse drug reaction [Unknown]
  - Headache [Unknown]
  - Throat tightness [Unknown]
  - Peroneal nerve palsy [Not Recovered/Not Resolved]
  - Optic neuritis [Unknown]
  - Dysgeusia [Unknown]
  - Stress [Unknown]
  - Chest discomfort [Unknown]

NARRATIVE: CASE EVENT DATE: 2014
